FAERS Safety Report 10886316 (Version 1)
Quarter: 2015Q1

REPORT INFORMATION
  Report Type: Spontaneous
  Country: US (occurrence: US)
  Receive Date: 20150304
  Receipt Date: 20150304
  Transmission Date: 20150721
  Serious: Yes (Hospitalization, Congenital Anomaly, Other)
  Sender: FDA-Public Use
  Company Number: US-APOTEX-2015AP006990

PATIENT
  Age: 0 Day
  Sex: Male

DRUGS (4)
  1. PRENATAL VITAMINS                  /07426201/ [Concomitant]
     Active Substance: ASCORBIC ACID\BIOTIN\MINERALS\NIACIN\RETINOL\TOCOPHEROL\VITAMIN B\VITAMIN D
     Indication: PRODUCT USED FOR UNKNOWN INDICATION
     Route: 064
  2. PAROXETINE HYDROCHLORIDE. [Suspect]
     Active Substance: PAROXETINE HYDROCHLORIDE
     Indication: DEPRESSION
     Dosage: 40 MG, UNK
     Route: 064
     Dates: start: 2003, end: 2003
  3. IRON COMPOUND [Concomitant]
     Indication: PRODUCT USED FOR UNKNOWN INDICATION
     Route: 064
  4. PAXIL [Suspect]
     Active Substance: PAROXETINE HYDROCHLORIDE
     Indication: DEPRESSION
     Dosage: 40 MG, Q.AM
     Route: 064
     Dates: start: 2003, end: 2003

REACTIONS (22)
  - Patent ductus arteriosus [Unknown]
  - Epilepsy [Unknown]
  - Encephalopathy [Unknown]
  - Cerebral infarction [Unknown]
  - Periventricular leukomalacia [Unknown]
  - Respiratory distress [Unknown]
  - Apnoea neonatal [Unknown]
  - Urinary tract infection [Unknown]
  - Developmental delay [Unknown]
  - Internal injury [Unknown]
  - Retinopathy of prematurity [Unknown]
  - Cerebral palsy [Unknown]
  - Congenital brain damage [Unknown]
  - Schizencephaly [Unknown]
  - Necrotising colitis [Unknown]
  - Attention deficit/hyperactivity disorder [Unknown]
  - Obsessive-compulsive disorder [Unknown]
  - Cholestasis [Unknown]
  - Phlebitis [Unknown]
  - Hypotension [Unknown]
  - Premature baby [Unknown]
  - Foetal exposure during pregnancy [Unknown]

NARRATIVE: CASE EVENT DATE: 20031022
